FAERS Safety Report 6897840-6 (Version None)
Quarter: 2010Q3

REPORT INFORMATION
  Report Type: 
  Country: None (occurrence: None)
  Receive Date: 20100802
  Receipt Date: 20070731
  Transmission Date: 20110219
  Serious: No
  Sender: FDA-Public Use
  Company Number: US-PFIZER INC-2007061617

PATIENT
  Sex: Female
  Weight: 95.5 kg

DRUGS (6)
  1. LYRICA [Suspect]
     Indication: DIABETIC NEUROPATHY
     Route: 048
     Dates: start: 20070701
  2. INSULIN INJECTION [Concomitant]
  3. ACETYLSALICYLIC ACID SRT [Concomitant]
  4. BENICAR [Concomitant]
  5. METFORMIN HCL [Concomitant]
  6. DRUG, UNSPECIFIED [Concomitant]

REACTIONS (1)
  - PAIN IN EXTREMITY [None]
